FAERS Safety Report 7742193-4 (Version None)
Quarter: 2011Q3

REPORT INFORMATION
  Report Type: 
  Country: None (occurrence: None)
  Receive Date: 20110907
  Receipt Date: 20110907
  Transmission Date: 20111222
  Serious: Yes (Life-Threatening, Hospitalization, Disabling)
  Sender: FDA-Public Use
  Company Number: None

PATIENT
  Sex: Female
  Weight: 56.6996 kg

DRUGS (1)
  1. NUVARING [Suspect]
     Indication: CONTRACEPTION
     Dosage: 0.120MG/0.015MG PER DAY NEW RING Q MONTH (TRANSVAGINAL) 066
     Route: 067
     Dates: start: 20110501, end: 20110704

REACTIONS (2)
  - TRANSVERSE SINUS THROMBOSIS [None]
  - HAEMORRHAGE INTRACRANIAL [None]
